FAERS Safety Report 7360104-0 (Version None)
Quarter: 2011Q1

REPORT INFORMATION
  Report Type: 
  Country: None (occurrence: None)
  Receive Date: 20110318
  Receipt Date: 20110309
  Transmission Date: 20110831
  Serious: Yes (Hospitalization, Other)
  Sender: FDA-Public Use
  Company Number: US-BIOGENIDEC-2011BI009002

PATIENT
  Sex: Female

DRUGS (3)
  1. TYSABRI [Suspect]
     Route: 042
     Dates: start: 20050114
  2. TYSABRI [Suspect]
     Indication: MULTIPLE SCLEROSIS
     Route: 042
     Dates: start: 20100909
  3. TYSABRI [Suspect]
     Route: 042
     Dates: start: 20061117, end: 20080701

REACTIONS (4)
  - HAEMORRHAGE [None]
  - MALAISE [None]
  - STRESS [None]
  - MULTIPLE SCLEROSIS [None]
